FAERS Safety Report 26053445 (Version 1)
Quarter: 2025Q4

REPORT INFORMATION
  Report Type: Spontaneous
  Country: GB (occurrence: None)
  Receive Date: 20251115
  Receipt Date: 20251115
  Transmission Date: 20260118
  Serious: Yes (Disabling, Other)
  Sender: FDA-CTU
  Company Number: None

PATIENT
  Age: 16 Year
  Sex: Female

DRUGS (5)
  1. PAROXETINE HYDROCHLORIDE [Suspect]
     Active Substance: PAROXETINE HYDROCHLORIDE
     Indication: Anxiety
  2. PAROXETINE HYDROCHLORIDE [Suspect]
     Active Substance: PAROXETINE HYDROCHLORIDE
     Indication: Depression
  3. PROZAC [Suspect]
     Active Substance: FLUOXETINE HYDROCHLORIDE
  4. CITALOPRAM [Suspect]
     Active Substance: CITALOPRAM
  5. ESCITALOPRAM [Suspect]
     Active Substance: ESCITALOPRAM OXALATE

REACTIONS (20)
  - Withdrawal syndrome [None]
  - Gastrointestinal disorder [None]
  - Idiopathic intracranial hypertension [None]
  - Hypertension [None]
  - Palpitations [None]
  - Agitation [None]
  - Restlessness [None]
  - Akathisia [None]
  - Fear [None]
  - Neuralgia [None]
  - Nervous system disorder [None]
  - Loss of personal independence in daily activities [None]
  - Weight decreased [None]
  - Derealisation [None]
  - Bedridden [None]
  - Gait inability [None]
  - Emotional distress [None]
  - Emotional distress [None]
  - Cognitive disorder [None]
  - Physical disability [None]

NARRATIVE: CASE EVENT DATE: 19990101
